FAERS Safety Report 9264035 (Version 1)
Quarter: 2013Q2

REPORT INFORMATION
  Report Type: Spontaneous
  Country: US (occurrence: US)
  Receive Date: 20130430
  Receipt Date: 20130430
  Transmission Date: 20140414
  Serious: Yes (Hospitalization, Other)
  Sender: FDA-Public Use
  Company Number: US-PFIZER INC-2013131174

PATIENT
  Age: 83 Year
  Sex: Male

DRUGS (4)
  1. BENICAR [Suspect]
     Indication: HYPERTENSION
     Dosage: 40MG DAILY
     Route: 048
     Dates: start: 2012
  2. NORVASC [Suspect]
     Indication: HYPERTENSION
     Dosage: UNK
     Route: 048
     Dates: start: 201303, end: 201303
  3. COREG [Concomitant]
     Indication: ARRHYTHMIA
     Dosage: UNK, (BID)
     Route: 048
  4. COREG [Concomitant]
     Indication: HYPERTENSION

REACTIONS (3)
  - Hypertension [Not Recovered/Not Resolved]
  - Hypotension [Not Recovered/Not Resolved]
  - Blood pressure systolic decreased [Not Recovered/Not Resolved]
